FAERS Safety Report 18994478 (Version 2)
Quarter: 2021Q1

REPORT INFORMATION
  Report Type: Spontaneous
  Country: DE (occurrence: DE)
  Receive Date: 20210310
  Receipt Date: 20210314
  Transmission Date: 20210420
  Serious: Yes (Death, Other)
  Sender: FDA-Public Use
  Company Number: DE-B.I. PHARMACEUTICALS,INC./RIDGEFIELD-2021-BI-088684

PATIENT
  Sex: Male

DRUGS (2)
  1. VARGATEF [Suspect]
     Active Substance: NINTEDANIB
     Indication: BRONCHIAL CARCINOMA
  2. DOCETAXEL. [Suspect]
     Active Substance: DOCETAXEL
     Indication: BRONCHIAL CARCINOMA

REACTIONS (1)
  - Bronchial carcinoma [Fatal]
